FAERS Safety Report 4891568-X (Version None)
Quarter: 2006Q1

REPORT INFORMATION
  Report Type: 
  Country: None (occurrence: None)
  Receive Date: 20060125
  Receipt Date: 20041117
  Transmission Date: 20060701
  Serious: Yes (Hospitalization, Disabling)
  Sender: FDA-Public Use
  Company Number: US-MERCK-0411USA03656

PATIENT
  Age: 66 Year
  Sex: Male
  Weight: 80 kg

DRUGS (5)
  1. VIOXX [Suspect]
     Indication: BACK PAIN
     Route: 048
     Dates: start: 20020101, end: 20030101
  2. ASPIRIN [Concomitant]
     Route: 065
  3. ZESTRIL [Concomitant]
     Route: 065
  4. PRILOSEC [Concomitant]
     Route: 065
  5. PRAVACHOL [Concomitant]
     Route: 065

REACTIONS (10)
  - ABNORMAL BEHAVIOUR [None]
  - ADVERSE EVENT [None]
  - CEREBRAL INFARCTION [None]
  - CEREBROVASCULAR ACCIDENT [None]
  - CONFUSIONAL STATE [None]
  - DISORIENTATION [None]
  - HYPERTENSION [None]
  - LOSS OF CONSCIOUSNESS [None]
  - LUMBAR SPINAL STENOSIS [None]
  - TRANSIENT ISCHAEMIC ATTACK [None]
